FAERS Safety Report 7135366-5 (Version None)
Quarter: 2010Q4

REPORT INFORMATION
  Report Type: 
  Country: None (occurrence: None)
  Receive Date: 20101203
  Receipt Date: 20101130
  Transmission Date: 20110411
  Serious: Yes (Other)
  Sender: FDA-Public Use
  Company Number: AU-PFIZER INC-2010143147

PATIENT
  Age: 45 Year
  Sex: Female

DRUGS (2)
  1. VIBRAMYCIN [Suspect]
     Indication: BRONCHITIS
     Dosage: 100 MG, 1X/DAY
     Route: 048
     Dates: start: 20101013, end: 20101001
  2. VIBRAMYCIN [Suspect]
     Indication: UPPER RESPIRATORY TRACT INFECTION

REACTIONS (6)
  - CANDIDIASIS [None]
  - DERMATITIS [None]
  - ERYTHEMA [None]
  - FEELING HOT [None]
  - PHOTOSENSITIVITY REACTION [None]
  - SKIN BURNING SENSATION [None]
